FAERS Safety Report 21988474 (Version 1)
Quarter: 2023Q1

REPORT INFORMATION
  Report Type: Spontaneous
  Country: US (occurrence: US)
  Receive Date: 20230214
  Receipt Date: 20230214
  Transmission Date: 20230418
  Serious: Yes (Other)
  Sender: FDA-Public Use
  Company Number: US-GLAND PHARMA LIMITED-2023US000485

PATIENT
  Sex: Female

DRUGS (1)
  1. MAGNESIUM SULFATE [Suspect]
     Active Substance: MAGNESIUM SULFATE
     Indication: Seizure prophylaxis
     Dosage: UNK
     Route: 042

REACTIONS (4)
  - Premature separation of placenta [Unknown]
  - Eclampsia [Unknown]
  - Seizure [Unknown]
  - Maternal exposure during pregnancy [Unknown]
